FAERS Safety Report 9972838 (Version 2)
Quarter: 2014Q1

REPORT INFORMATION
  Report Type: Report from Study
  Country: KR (occurrence: KR)
  Receive Date: 20140306
  Receipt Date: 20140314
  Transmission Date: 20141002
  Serious: Yes (Hospitalization)
  Sender: FDA-Public Use
  Company Number: KR-UCBSA-113756

PATIENT
  Age: 51 Year
  Sex: Female
  Weight: 56 kg

DRUGS (14)
  1. CERTOLIZUMAB PEGOL [Suspect]
     Indication: RHEUMATOID ARTHRITIS
     Route: 058
     Dates: start: 20100811
  2. PREDNISONE [Concomitant]
     Indication: RHEUMATOID ARTHRITIS
     Route: 048
     Dates: start: 20030809
  3. PARAMACET [Concomitant]
     Indication: RHEUMATOID ARTHRITIS
     Route: 048
     Dates: start: 20060404
  4. FOLIC ACID [Concomitant]
     Indication: PROPHYLAXIS
     Route: 048
     Dates: start: 20010811
  5. CELECOXIB [Concomitant]
     Indication: RHEUMATOID ARTHRITIS
     Route: 048
     Dates: start: 20070320
  6. REBAMIPIDE [Concomitant]
     Indication: PROPHYLAXIS AGAINST GASTROINTESTINAL ULCER
     Route: 048
     Dates: start: 20030225
  7. ATORVASTATIN [Concomitant]
     Indication: HYPERCHOLESTEROLAEMIA
     Route: 048
     Dates: start: 20110126
  8. TACROLIMUS [Concomitant]
     Indication: MECHANICAL URTICARIA
     Route: 061
     Dates: start: 20110502
  9. DESOXIMETASONE [Concomitant]
     Indication: MECHANICAL URTICARIA
     Route: 061
     Dates: start: 20110723
  10. DESONIDE [Concomitant]
     Indication: MECHANICAL URTICARIA
     Route: 061
     Dates: start: 20110723
  11. MICRONIZED CICLOSONIDE [Concomitant]
     Indication: MUCOSAL DRYNESS
     Dates: start: 20110914
  12. METHOTREXATE [Concomitant]
     Indication: RHEUMATOID ARTHRITIS
     Route: 048
     Dates: start: 20130516
  13. KLIMAKTOPLAN [Concomitant]
     Indication: MENOPAUSE
     Route: 048
     Dates: start: 20130320
  14. ESTROPIPATE [Concomitant]
     Indication: MENOPAUSE
     Route: 002
     Dates: start: 20130320

REACTIONS (1)
  - Pyelonephritis acute [Recovered/Resolved]
